FAERS Safety Report 6914427-7 (Version None)
Quarter: 2010Q3

REPORT INFORMATION
  Report Type: 
  Country: None (occurrence: None)
  Receive Date: 20100809
  Receipt Date: 20100729
  Transmission Date: 20110219
  Serious: Yes (Other)
  Sender: FDA-Public Use
  Company Number: JP-PFIZER INC-2010086041

PATIENT
  Age: 96 Year
  Sex: Male

DRUGS (4)
  1. ALDACTONE [Suspect]
     Indication: OEDEMA
     Dosage: 25 MG, DAILY
     Route: 048
     Dates: start: 20100707
  2. LASIX [Concomitant]
     Dosage: UNK
     Route: 048
  3. CLINORIL [Concomitant]
     Dosage: UNK
  4. SELBEX [Concomitant]
     Dosage: UNK

REACTIONS (1)
  - CHROMATURIA [None]
